FAERS Safety Report 15475710 (Version 2)
Quarter: 2018Q4

REPORT INFORMATION
  Report Type: Spontaneous
  Country: US (occurrence: US)
  Receive Date: 20181008
  Receipt Date: 20181109
  Transmission Date: 20190205
  Serious: Yes (Hospitalization, Other)
  Sender: FDA-Public Use
  Company Number: US-ASTRAZENECA-2018SF28969

PATIENT
  Age: 24678 Day
  Sex: Male

DRUGS (1)
  1. TUDORZA PRESSAIR [Suspect]
     Active Substance: ACLIDINIUM BROMIDE
     Indication: CHRONIC OBSTRUCTIVE PULMONARY DISEASE
     Route: 055

REACTIONS (9)
  - Contusion [Unknown]
  - Device malfunction [Unknown]
  - Sternal fracture [Unknown]
  - Clavicle fracture [Unknown]
  - Road traffic accident [Unknown]
  - Spinal compression fracture [Unknown]
  - Head injury [Unknown]
  - Device issue [Unknown]
  - Skin abrasion [Unknown]

NARRATIVE: CASE EVENT DATE: 20180907
